FAERS Safety Report 8187741-8 (Version None)
Quarter: 2012Q1

REPORT INFORMATION
  Report Type: 
  Country: None (occurrence: None)
  Receive Date: 20120306
  Receipt Date: 20120229
  Transmission Date: 20120608
  Serious: Yes (Other)
  Sender: FDA-Public Use
  Company Number: US-PFIZER INC-2012042002

PATIENT
  Sex: Male
  Weight: 81.633 kg

DRUGS (7)
  1. PERCOCET [Concomitant]
     Indication: ARTHROPATHY
     Dosage: 10 MG DAILY
  2. LISINOPRIL [Concomitant]
     Indication: HYPERTENSION
     Dosage: 20 MG, DAILY
  3. LYRICA [Suspect]
     Indication: NEUROPATHY PERIPHERAL
     Dosage: 300 MG, 2X/DAY
     Route: 048
     Dates: start: 20030101, end: 20080101
  4. LYRICA [Suspect]
     Dosage: UNK
  5. IBUPROFEN (ADVIL) [Suspect]
     Indication: PAIN
     Dosage: 300 MG, 2X/DAY
  6. ZOCOR [Concomitant]
     Indication: BLOOD CHOLESTEROL INCREASED
     Dosage: 20 MG, DAILY
  7. PERCOCET [Concomitant]
     Indication: BACK DISORDER

REACTIONS (7)
  - VISION BLURRED [None]
  - DRUG INEFFECTIVE [None]
  - HYPERTENSION [None]
  - FIBROMYALGIA [None]
  - GAIT DISTURBANCE [None]
  - PAIN [None]
  - HEADACHE [None]
